FAERS Safety Report 8839544 (Version 5)
Quarter: 2014Q4

REPORT INFORMATION
  Report Type: Report from Study
  Country: CA (occurrence: CA)
  Receive Date: 20121015
  Receipt Date: 20141125
  Transmission Date: 20150529
  Serious: Yes (Death, Other)
  Sender: FDA-Public Use
  Company Number: PHHY2012CA046553

PATIENT
  Age: 66 Year
  Sex: Male

DRUGS (6)
  1. AFINITOR [Suspect]
     Active Substance: EVEROLIMUS
     Dosage: 7.5 MG, QD
     Route: 048
     Dates: start: 20130806, end: 201406
  2. AFINITOR [Suspect]
     Active Substance: EVEROLIMUS
     Indication: NEUROENDOCRINE TUMOUR
     Dosage: 7.5 MG, QD
     Route: 048
     Dates: start: 20120515, end: 20120710
  3. SANDOSTATIN LAR DEPOT [Suspect]
     Active Substance: OCTREOTIDE ACETATE
     Indication: NEUROENDOCRINE TUMOUR
     Dosage: 30 MG, QMO
     Route: 030
     Dates: start: 20091101, end: 20141021
  4. AFINITOR [Suspect]
     Active Substance: EVEROLIMUS
     Dosage: 5 -10 MG, QOD (ALTERNATIVELY)
     Route: 048
     Dates: start: 201302
  5. SALINE [Concomitant]
     Active Substance: SODIUM CHLORIDE
     Indication: PROPHYLAXIS AGAINST DEHYDRATION
     Route: 042
  6. AFINITOR [Suspect]
     Active Substance: EVEROLIMUS
     Dosage: 5 MG, QD
     Route: 048
     Dates: start: 20120801, end: 201302

REACTIONS (18)
  - Malignant neoplasm progression [Unknown]
  - Back pain [Unknown]
  - Pelvic pain [Unknown]
  - Stomatitis [Not Recovered/Not Resolved]
  - Gait disturbance [Recovering/Resolving]
  - Confusional state [Unknown]
  - Decreased appetite [Unknown]
  - Bone lesion [Unknown]
  - Anxiety [Unknown]
  - Blood pressure increased [Not Recovered/Not Resolved]
  - Oral herpes [Not Recovered/Not Resolved]
  - No therapeutic response [Unknown]
  - Death [Fatal]
  - Neuralgia [Unknown]
  - Injection site pain [Unknown]
  - Asthenia [Unknown]
  - Weight decreased [Unknown]
  - Metastases to bone [Unknown]

NARRATIVE: CASE EVENT DATE: 2014
